FAERS Safety Report 5097682-0 (Version None)
Quarter: 2006Q3

REPORT INFORMATION
  Report Type: 
  Country: None (occurrence: None)
  Receive Date: 20060901
  Receipt Date: 20060825
  Transmission Date: 20061208
  Serious: Yes (Death)
  Sender: FDA-Public Use
  Company Number: JP-2006-018556

PATIENT
  Age: 36 Year
  Sex: Male

DRUGS (1)
  1. MAGNEVIST [Suspect]
     Indication: NUCLEAR MAGNETIC RESONANCE IMAGING
     Dosage: 0.3 ML, 0.03 ML/SEC, INTRA-ARTICULAR
     Route: 014
     Dates: start: 20060703, end: 20060703

REACTIONS (2)
  - GENERAL PHYSICAL CONDITION ABNORMAL [None]
  - SUDDEN DEATH [None]
